FAERS Safety Report 18205805 (Version 2)
Quarter: 2022Q1

REPORT INFORMATION
  Report Type: Spontaneous
  Country: US (occurrence: US)
  Receive Date: 20200827
  Receipt Date: 20220330
  Transmission Date: 20220424
  Serious: Yes (Death, Hospitalization, Disabling, Other)
  Sender: FDA-Public Use
  Company Number: US-PURDUE-USA-2020-0163494

PATIENT
  Sex: Female

DRUGS (1)
  1. OXYCONTIN [Suspect]
     Active Substance: OXYCODONE HYDROCHLORIDE
     Indication: Product used for unknown indication
     Dosage: UNKNOWN
     Route: 048
     Dates: start: 201703

REACTIONS (13)
  - Death [Fatal]
  - Knee arthroplasty [Unknown]
  - Spinal fracture [Unknown]
  - Walking disability [Unknown]
  - Monoplegia [Unknown]
  - Loss of consciousness [Unknown]
  - Limb injury [Unknown]
  - Hypoaesthesia [Unknown]
  - Dysgraphia [Unknown]
  - Fall [Unknown]
  - Neck injury [Unknown]
  - Joint injury [Unknown]
  - Asthenia [Unknown]

NARRATIVE: CASE EVENT DATE: 20150101
